FAERS Safety Report 21044152 (Version 1)
Quarter: 2022Q3

REPORT INFORMATION
  Report Type: Spontaneous
  Country: CN (occurrence: CN)
  Receive Date: 20220705
  Receipt Date: 20220705
  Transmission Date: 20221026
  Serious: Yes (Hospitalization, Other)
  Sender: FDA-Public Use
  Company Number: None

PATIENT
  Age: 50 Year
  Sex: Female
  Weight: 48.8 kg

DRUGS (12)
  1. CYCLOPHOSPHAMIDE [Suspect]
     Active Substance: CYCLOPHOSPHAMIDE
     Indication: Breast cancer female
     Dosage: 650 MG, QD, CYCLOPHOSPHAMIDE (650 MG) + 0.9% SODIUM CHLORIDE (500 ML) IVGTT
     Route: 041
     Dates: start: 20220602, end: 20220602
  2. CYCLOPHOSPHAMIDE [Suspect]
     Active Substance: CYCLOPHOSPHAMIDE
     Dosage: UNK, QD, (DOSE RE-INTRODUCED), CYCLOPHOSPHAMIDE + 0.9% SODIUM CHLORIDE IVGTT
     Route: 041
  3. SODIUM CHLORIDE [Suspect]
     Active Substance: SODIUM CHLORIDE
     Indication: Medication dilution
     Dosage: 500 ML, QD, CYCLOPHOSPHAMIDE (650 MG) + 0.9% SODIUM CHLORIDE (500 ML) IVGTT
     Route: 041
     Dates: start: 20220602, end: 20220602
  4. SODIUM CHLORIDE [Suspect]
     Active Substance: SODIUM CHLORIDE
     Dosage: UNK, QD, (DOSE RE-INTRODUCED), CYCLOPHOSPHAMIDE + 0.9% SODIUM CHLORIDE IVGTT
     Route: 041
  5. SODIUM CHLORIDE [Suspect]
     Active Substance: SODIUM CHLORIDE
     Dosage: 250 ML, QD, PACLITAXEL (ALBUMIN BOUND) (337 MG) + 0.9% SODIUM CHLORIDE (250 ML) IVGTT
     Route: 041
     Dates: start: 20220602, end: 20220602
  6. SODIUM CHLORIDE [Suspect]
     Active Substance: SODIUM CHLORIDE
     Dosage: UNK, QD, (DOSE RE-INTRODUCED), PACLITAXEL (ALBUMIN BOUND) + 0.9% SODIUM CHLORIDE IVGTT
     Route: 041
  7. DEXTROSE MONOHYDRATE [Suspect]
     Active Substance: DEXTROSE MONOHYDRATE
     Indication: Medication dilution
     Dosage: 250 ML, QD, GLUCOSE (250 ML) + PIRARUBICIN HYDROCHLORIDE (65 MG) IVGTT
     Route: 065
     Dates: start: 20220602, end: 20220602
  8. DEXTROSE MONOHYDRATE [Suspect]
     Active Substance: DEXTROSE MONOHYDRATE
     Dosage: UNK, QD, (DOSE RE-INTRODUCED) GLUCOSE + PIRARUBICIN HYDROCHLORIDE IVGTT
     Route: 041
  9. PIRARUBICIN HYDROCHLORIDE [Suspect]
     Active Substance: PIRARUBICIN HYDROCHLORIDE
     Indication: Breast cancer female
     Dosage: 65 MG, QD, GLUCOSE (250 ML) + PIRARUBICIN HYDROCHLORIDE (65 MG) IVGTT
     Route: 041
     Dates: start: 20220602, end: 20220602
  10. PIRARUBICIN HYDROCHLORIDE [Suspect]
     Active Substance: PIRARUBICIN HYDROCHLORIDE
     Dosage: UNK, QD, (DOSE RE-INTRODUCED), GLUCOSE + PIRARUBICIN HYDROCHLORIDE IVGTT
     Route: 041
  11. PACLITAXEL [Suspect]
     Active Substance: PACLITAXEL
     Indication: Breast cancer female
     Dosage: 337 MG, QD, PACLITAXEL (ALBUMIN BOUND) (337 MG) + 0.9% SODIUM CHLORIDE (250 ML) IVGTT
     Route: 041
     Dates: start: 20220602, end: 20220602
  12. PACLITAXEL [Suspect]
     Active Substance: PACLITAXEL
     Dosage: UNK, QD, (DOSE RE-INTRODUCED), PACLITAXEL (ALBUMIN BOUND) + 0.9% SODIUM CHLORIDE,IVGTT
     Route: 041

REACTIONS (1)
  - Myelosuppression [Recovering/Resolving]

NARRATIVE: CASE EVENT DATE: 20220610
